FAERS Safety Report 17829367 (Version 1)
Quarter: 2020Q2

REPORT INFORMATION
  Report Type: Spontaneous
  Country: CN (occurrence: CN)
  Receive Date: 20200527
  Receipt Date: 20200527
  Transmission Date: 20200714
  Serious: Yes (Other)
  Sender: FDA-Public Use
  Company Number: CN-FRESENIUS KABI-FK202005013

PATIENT
  Age: 69 Year
  Sex: Female
  Weight: 74 kg

DRUGS (1)
  1. LIPOVENOES MCT 20% [Suspect]
     Active Substance: EGG PHOSPHOLIPIDS\GLYCERIN\MEDIUM-CHAIN TRIGLYCERIDES\SOYBEAN OIL
     Indication: NUTRITIONAL SUPPLEMENTATION
     Dosage: 250ML QD
     Route: 041
     Dates: start: 20200430, end: 20200430

REACTIONS (7)
  - Heart rate increased [Recovering/Resolving]
  - Productive cough [Recovering/Resolving]
  - Chills [Recovering/Resolving]
  - Flushing [Recovering/Resolving]
  - Hyperhidrosis [Recovering/Resolving]
  - Mental fatigue [Recovering/Resolving]
  - Dyspnoea [Recovering/Resolving]

NARRATIVE: CASE EVENT DATE: 20200430
